FAERS Safety Report 7303221 (Version 3)
Quarter: 2015Q1

REPORT INFORMATION
  Report Type: Report from Study
  Country: MX (occurrence: MX)
  Receive Date: 20100303
  Receipt Date: 20150210
  Transmission Date: 20150721
  Serious: Yes (Death, Hospitalization, Other)
  Sender: FDA-Public Use
  Company Number: PHHY2010MX11530

PATIENT
  Age: 64 Year
  Sex: Male

DRUGS (1)
  1. STALEVO [Suspect]
     Active Substance: CARBIDOPA\ENTACAPONE\LEVODOPA
     Indication: PARKINSON^S DISEASE
     Dosage: 2 DF, QD (50/12.5/200MG)
     Route: 048
     Dates: start: 200903, end: 20100207

REACTIONS (9)
  - Thrombosis mesenteric vessel [Unknown]
  - Peritonitis [None]
  - Intestinal obstruction [Unknown]
  - Sepsis [Fatal]
  - Vomiting [Unknown]
  - Constipation [Unknown]
  - Wrong technique in drug usage process [Unknown]
  - Respiratory arrest [Fatal]
  - Appendicitis [Unknown]

NARRATIVE: CASE EVENT DATE: 20100201
